FAERS Safety Report 22624176 (Version 1)
Quarter: 2023Q2

REPORT INFORMATION
  Report Type: Spontaneous
  Country: US (occurrence: US)
  Receive Date: 20230621
  Receipt Date: 20230621
  Transmission Date: 20230722
  Serious: No
  Sender: FDA-Public Use
  Company Number: US-SANOFI-01658460

PATIENT
  Age: 55 Year
  Sex: Male

DRUGS (5)
  1. ZALTRAP [Suspect]
     Active Substance: ZIV-AFLIBERCEPT
     Indication: Colon cancer
     Dosage: 300 MG, QOW(AND DRUG TREATMENT DURATION:4 DOSES AGO)
  2. ZALTRAP [Suspect]
     Active Substance: ZIV-AFLIBERCEPT
     Dosage: 100MG
  3. ZALTRAP [Suspect]
     Active Substance: ZIV-AFLIBERCEPT
     Dosage: 200MG
  4. FLUOROURACIL\LEUCOVORIN CALCIUM\OXALIPLATIN [Concomitant]
     Active Substance: FLUOROURACIL\LEUCOVORIN CALCIUM\OXALIPLATIN
  5. FLUOROURACIL [Concomitant]
     Active Substance: FLUOROURACIL

REACTIONS (3)
  - Tongue blistering [Unknown]
  - Oral discomfort [Unknown]
  - Burning sensation [Unknown]
